FAERS Safety Report 5878963-7 (Version None)
Quarter: 2008Q3

REPORT INFORMATION
  Report Type: 
  Country: None (occurrence: None)
  Receive Date: 20080912
  Receipt Date: 20080908
  Transmission Date: 20090109
  Serious: Yes (Other)
  Sender: FDA-Public Use
  Company Number: US-BRISTOL-MYERS SQUIBB COMPANY-14327746

PATIENT
  Age: 19 Year
  Sex: Male

DRUGS (2)
  1. IFOSFAMIDE [Suspect]
     Indication: SYNOVIAL SARCOMA
  2. ADRIAMYCIN PFS [Suspect]
     Indication: SYNOVIAL SARCOMA

REACTIONS (1)
  - THYMUS DISORDER [None]
